FAERS Safety Report 15593659 (Version 3)
Quarter: 2019Q2

REPORT INFORMATION
  Report Type: Spontaneous
  Country: US (occurrence: US)
  Receive Date: 20181107
  Receipt Date: 20190522
  Transmission Date: 20190711
  Serious: Yes (Other)
  Sender: FDA-Public Use
  Company Number: US-PFIZER INC-2018458529

PATIENT
  Age: 53 Year

DRUGS (10)
  1. VIAGRA [Suspect]
     Active Substance: SILDENAFIL CITRATE
     Indication: ERECTILE DYSFUNCTION
     Dosage: 100 MG, 1 HOUR BEFORE SEXUAL ACTIVITY
     Route: 048
     Dates: start: 20080805, end: 20100210
  2. TAMSULOSIN [Concomitant]
     Active Substance: TAMSULOSIN
     Indication: PROSTATOMEGALY
     Dosage: UNK
     Dates: start: 20160314, end: 20170106
  3. IBUPROFEN. [Concomitant]
     Active Substance: IBUPROFEN
     Indication: PAIN
     Dosage: UNK
     Dates: start: 20170131
  4. VIAGRA [Suspect]
     Active Substance: SILDENAFIL CITRATE
     Dosage: 100 MG, 1 HOUR BEFORE SEXUAL ACTIVITY
     Route: 048
     Dates: start: 20090511, end: 20100406
  5. SILDENAFIL CITRATE. [Suspect]
     Active Substance: SILDENAFIL CITRATE
     Dosage: 20 MG, 3 TABLETS, 1 HOUR BEFORE SEXUAL ACTIVITY
     Dates: start: 20171220, end: 20180508
  6. VIAGRA [Suspect]
     Active Substance: SILDENAFIL CITRATE
     Dosage: 100 MG, 1 HOUR BEFORE SEXUAL ACTIVITY
     Route: 048
     Dates: start: 20100427, end: 20121101
  7. SILDENAFIL CITRATE. [Suspect]
     Active Substance: SILDENAFIL CITRATE
     Dosage: 20 MG, 3 TABLETS, 1 HOUR BEFORE SEXUAL ACTIVITY
     Dates: start: 20141010, end: 20150514
  8. GABAPENTIN. [Concomitant]
     Active Substance: GABAPENTIN
     Indication: PAIN
     Dosage: UNK
     Dates: start: 20170131, end: 20170713
  9. SILDENAFIL CITRATE. [Suspect]
     Active Substance: SILDENAFIL CITRATE
     Dosage: 20 MG, 3 TABLETS, 1 HOUR BEFORE SEXUAL ACTIVITY
     Dates: start: 20150926, end: 20171021
  10. ACETAMINOPHEN-HYDROCODONE [Concomitant]
     Active Substance: ACETAMINOPHEN\HYDROCODONE
     Indication: PAIN
     Dosage: UNK
     Dates: start: 20161101, end: 20170106

REACTIONS (4)
  - Gastrointestinal melanoma [Unknown]
  - Malignant melanoma [Unknown]
  - Central nervous system melanoma [Unknown]
  - Malignant melanoma stage III [Unknown]

NARRATIVE: CASE EVENT DATE: 20161101
